FAERS Safety Report 8291555-8 (Version None)
Quarter: 2012Q2

REPORT INFORMATION
  Report Type: 
  Country: None (occurrence: None)
  Receive Date: 20120417
  Receipt Date: 20120413
  Transmission Date: 20120825
  Serious: Yes (Other)
  Sender: FDA-Public Use
  Company Number: PHHY2011CA106520

PATIENT
  Sex: Female

DRUGS (2)
  1. OXYCET [Concomitant]
     Dosage: UNK UKN, UNK
  2. GILENYA [Suspect]
     Indication: RELAPSING-REMITTING MULTIPLE SCLEROSIS
     Dosage: 0.5 MG, QD
     Route: 048
     Dates: start: 20111202, end: 20111202

REACTIONS (7)
  - NAUSEA [None]
  - HYPOAESTHESIA [None]
  - DIARRHOEA [None]
  - DECREASED APPETITE [None]
  - DIZZINESS [None]
  - MIGRAINE [None]
  - PARAESTHESIA [None]
